FAERS Safety Report 5278980-4 (Version None)
Quarter: 2007Q1

REPORT INFORMATION
  Report Type: 
  Country: None (occurrence: None)
  Receive Date: 20070328
  Receipt Date: 20061023
  Transmission Date: 20070707
  Serious: No
  Sender: FDA-Public Use
  Company Number: US-AMGEN-KDL197695

PATIENT
  Sex: Male

DRUGS (5)
  1. NEULASTA [Suspect]
     Indication: CHEMOTHERAPY
     Route: 065
     Dates: start: 20050101, end: 20050724
  2. GEMZAR [Concomitant]
     Route: 065
  3. TOPROL-XL [Concomitant]
     Route: 065
  4. ALTACE [Concomitant]
     Route: 065
  5. PREVACID [Concomitant]
     Route: 065

REACTIONS (6)
  - ARTHRALGIA [None]
  - BONE PAIN [None]
  - INFLUENZA LIKE ILLNESS [None]
  - INSOMNIA [None]
  - MYALGIA [None]
  - OESOPHAGEAL PAIN [None]
